FAERS Safety Report 8028720-0 (Version None)
Quarter: 2012Q1

REPORT INFORMATION
  Report Type: 
  Country: None (occurrence: None)
  Receive Date: 20120104
  Receipt Date: 20111222
  Transmission Date: 20120608
  Serious: Yes (Hospitalization)
  Sender: FDA-Public Use
  Company Number: 903002

PATIENT
  Age: 15 Year
  Sex: Male

DRUGS (1)
  1. GABLOFEN [Suspect]
     Dosage: 649 MCG DAILY

REACTIONS (14)
  - HYPOKALAEMIA [None]
  - PAIN [None]
  - BLOOD CREATINE PHOSPHOKINASE INCREASED [None]
  - URINARY TRACT INFECTION [None]
  - BRADYCARDIA [None]
  - HYPERTONIA [None]
  - FLUSHING [None]
  - GASTROOESOPHAGEAL REFLUX DISEASE [None]
  - OVERDOSE [None]
  - LETHARGY [None]
  - PYREXIA [None]
  - URINARY RETENTION [None]
  - SOMNOLENCE [None]
  - TREMOR [None]
